FAERS Safety Report 7359816-4 (Version None)
Quarter: 2011Q1

REPORT INFORMATION
  Report Type: 
  Country: None (occurrence: None)
  Receive Date: 20110317
  Receipt Date: 20110315
  Transmission Date: 20110831
  Serious: Yes (Death, Hospitalization, Other)
  Sender: FDA-Public Use
  Company Number: US-ROCHE-748205

PATIENT
  Age: 47 Year
  Sex: Female
  Weight: 58.1 kg

DRUGS (13)
  1. PACLITAXEL [Suspect]
     Indication: OVARIAN CANCER
     Dosage: OVER 1 HOUR ON DAY 1, 8 + 15.  LAST DOSE PRIOR TO SAE ON 23 AUGUST 2010.TOTAL DOSE: 129 MG
     Route: 042
     Dates: start: 20100614
  2. CARBOPLATIN [Suspect]
     Indication: OVARIAN CANCER
     Dosage: DOSE: 6 AUC ON DAY 1. LAST DOSE PRIOR TO SAE ON 23 AUGUST 2010. TOTAL DOSE: 304 MG
     Route: 033
     Dates: start: 20100614
  3. ZOFRAN [Concomitant]
  4. BEVACIZUMAB [Suspect]
     Indication: OVARIAN CANCER
     Dosage: OVER 30-90 MINUTES ON DAY 1. LAST DOSE PRIOR TO SAE ON 23 AUGUST 2010.TOTAL DOSE: 825 MG
     Route: 042
     Dates: start: 20100614
  5. CYMBALTA [Concomitant]
  6. AMBIEN CR [Concomitant]
  7. MECLIZINE [Concomitant]
  8. LYRICA [Concomitant]
  9. MAGNESIUM [Concomitant]
  10. NEXIUM [Concomitant]
  11. ATIVAN [Concomitant]
  12. COMPAZINE [Concomitant]
  13. PERCOCET [Concomitant]

REACTIONS (5)
  - RENAL FAILURE ACUTE [None]
  - ACUTE RESPIRATORY FAILURE [None]
  - PLEURAL EFFUSION [None]
  - ACUTE RESPIRATORY DISTRESS SYNDROME [None]
  - LEFT VENTRICULAR DYSFUNCTION [None]
